FAERS Safety Report 4326300-1 (Version None)
Quarter: 2004Q1

REPORT INFORMATION
  Report Type: 
  Country: None (occurrence: None)
  Receive Date: 20040324
  Receipt Date: 20040311
  Transmission Date: 20041129
  Serious: Yes (Hospitalization)
  Sender: FDA-Public Use
  Company Number: US_030292544

PATIENT
  Age: 70 Year
  Sex: Female
  Weight: 77 kg

DRUGS (16)
  1. PEMETREXED [Suspect]
     Indication: PANCREATIC CARCINOMA
     Dosage: 500 MG/M2/OTHER
     Route: 050
     Dates: start: 20030131, end: 20030606
  2. GEMCITABINE HYDROCHLORIDE-IV (GEMCITABINE) [Suspect]
     Indication: PANCREATIC CARCINOMA
     Dosage: 1250 MG/M2/OTHER
     Route: 050
     Dates: start: 20030124, end: 20030606
  3. LEVOXYL [Concomitant]
  4. OYSTER SHELL (CALCIUM CARBONATE) [Concomitant]
  5. METAMUCIL-2 [Concomitant]
  6. FOLIC ACID [Concomitant]
  7. VICODIN [Concomitant]
  8. ATIVAN [Concomitant]
  9. EXTRA STRENGTH TYLENOL [Concomitant]
  10. DULCOLAX [Concomitant]
  11. MIRALAX [Concomitant]
  12. PREVACID [Concomitant]
  13. FUROSEMIDE [Concomitant]
  14. ALDACTONE [Concomitant]
  15. KEFLEX [Concomitant]
  16. DEXAMETHASONE [Concomitant]

REACTIONS (20)
  - ABDOMINAL PAIN LOWER [None]
  - ANAEMIA [None]
  - CELLULITIS [None]
  - CONSTIPATION [None]
  - DECREASED APPETITE [None]
  - DISEASE PROGRESSION [None]
  - ERYTHEMA [None]
  - FATIGUE [None]
  - FEBRILE NEUTROPENIA [None]
  - FEELING ABNORMAL [None]
  - INFECTION [None]
  - MALIGNANT NEOPLASM PROGRESSION [None]
  - OEDEMA PERIPHERAL [None]
  - PAIN IN EXTREMITY [None]
  - PANCREATIC CARCINOMA [None]
  - PERIPHERAL EMBOLISM [None]
  - PERIPHERAL VASCULAR DISORDER [None]
  - THROMBOCYTOPENIA [None]
  - TROUSSEAU'S SYNDROME [None]
  - WEIGHT DECREASED [None]
